FAERS Safety Report 8970899 (Version 1)
Quarter: 2012Q4

REPORT INFORMATION
  Report Type: 
  Country: US (occurrence: US)
  Receive Date: 20121218
  Receipt Date: 20121218
  Transmission Date: 20130627
  Serious: Yes (Other)
  Sender: FDA-Public Use
  Company Number: US-ELI_LILLY_AND_COMPANY-US201212003055

PATIENT
  Age: 63 Year
  Sex: Male

DRUGS (1)
  1. HUMULIN REGULAR [Suspect]

REACTIONS (2)
  - Blood glucose increased [Unknown]
  - Incorrect dose administered [Recovered/Resolved]
